FAERS Safety Report 5581342-3 (Version None)
Quarter: 2008Q1

REPORT INFORMATION
  Report Type: 
  Country: None (occurrence: None)
  Receive Date: 20080104
  Receipt Date: 20071225
  Transmission Date: 20080703
  Serious: Yes (Hospitalization, Disabling)
  Sender: FDA-Public Use
  Company Number: PHEH2007US12365

PATIENT
  Age: 26 Year
  Sex: Female

DRUGS (3)
  1. CLOZARIL [Suspect]
     Indication: SCHIZOPHRENIA
     Route: 048
     Dates: start: 20030808
  2. CLOZARIL [Suspect]
     Dosage: 425 MG, UNK
     Route: 048
     Dates: start: 20040503
  3. DEPAKOTE [Concomitant]
     Dosage: 250 MG, UNK
     Route: 048
     Dates: start: 20031101, end: 20050118

REACTIONS (5)
  - CRANIOTOMY [None]
  - DIABETES INSIPIDUS [None]
  - FACIAL PALSY [None]
  - MALIGNANT HISTIOCYTOSIS [None]
  - RECURRENT CANCER [None]
